FAERS Safety Report 11754114 (Version 2)
Quarter: 2016Q1

REPORT INFORMATION
  Report Type: Spontaneous
  Country: US (occurrence: US)
  Receive Date: 20151119
  Receipt Date: 20160104
  Transmission Date: 20160525
  Serious: Yes (Death)
  Sender: FDA-Public Use
  Company Number: US-AMAG PHARMACEUTICALS, INC.-AMAG201501268

PATIENT

DRUGS (11)
  1. FERAHEME [Suspect]
     Active Substance: FERUMOXYTOL NON-STOICHIOMETRIC MAGNETITE
     Indication: ANAEMIA
     Dosage: 510 MG, SINGLE IN 100 ML NS
     Dates: start: 20151112, end: 20151112
  2. FERROUS GLUCONATE [Concomitant]
     Active Substance: FERROUS GLUCONATE
  3. COREG [Concomitant]
     Active Substance: CARVEDILOL
     Dosage: 5.25 MG, BID
  4. ASPIRIN. [Concomitant]
     Active Substance: ASPIRIN
     Dosage: 81 MG, QD
  5. LASIX [Concomitant]
     Active Substance: FUROSEMIDE
  6. LIPITOR [Concomitant]
     Active Substance: ATORVASTATIN CALCIUM
     Dosage: 10 MG, QD
  7. ZAROXOLYN [Concomitant]
     Active Substance: METOLAZONE
  8. XANAX [Concomitant]
     Active Substance: ALPRAZOLAM
     Dosage: 0.25 MG, QHS
  9. AMIODARONE [Concomitant]
     Active Substance: AMIODARONE
     Dosage: 200 MG, QD
  10. COMBIVENT [Concomitant]
     Active Substance: ALBUTEROL SULFATE\IPRATROPIUM BROMIDE
     Dosage: Q4H, PRN
  11. DIABETA [Concomitant]
     Active Substance: GLYBURIDE
     Dosage: 5 MG, BID

REACTIONS (2)
  - Dyspnoea [Fatal]
  - No therapeutic response [None]

NARRATIVE: CASE EVENT DATE: 20151112
